FAERS Safety Report 11472094 (Version 1)
Quarter: 2015Q3

REPORT INFORMATION
  Report Type: Spontaneous
  Country: US (occurrence: US)
  Receive Date: 20150908
  Receipt Date: 20150908
  Transmission Date: 20151125
  Serious: No
  Sender: FDA-Public Use
  Company Number: US-PFIZER INC-2015284040

PATIENT
  Age: 31 Year
  Sex: Male

DRUGS (1)
  1. EMBEDA [Suspect]
     Active Substance: MORPHINE SULFATE\NALTREXONE HYDROCHLORIDE
     Indication: PROCEDURAL PAIN
     Dosage: 30 MG, 2X/DAY

REACTIONS (2)
  - Intentional product use issue [Unknown]
  - Drug ineffective [Unknown]
